FAERS Safety Report 7900565-9 (Version None)
Quarter: 2011Q4

REPORT INFORMATION
  Report Type: 
  Country: None (occurrence: None)
  Receive Date: 20111108
  Receipt Date: 20111024
  Transmission Date: 20120403
  Serious: Yes (Hospitalization)
  Sender: FDA-Public Use
  Company Number: TR-US-EMD SERONO, INC.-7093981

PATIENT
  Sex: Female
  Weight: 63 kg

DRUGS (4)
  1. REBIF [Suspect]
     Indication: RELAPSING-REMITTING MULTIPLE SCLEROSIS
     Dates: start: 20091201, end: 20111014
  2. FERROUS SULFATE TAB [Concomitant]
     Indication: ANAEMIA
     Route: 048
     Dates: start: 20110901
  3. PAROL [Concomitant]
     Indication: ANTIPYRESIS
  4. PAROL [Concomitant]
     Indication: ANALGESIC THERAPY
     Route: 048
     Dates: start: 20091201

REACTIONS (3)
  - HAEMOGLOBIN ABNORMAL [None]
  - HAEMATOCRIT ABNORMAL [None]
  - ASTHENIA [None]
